FAERS Safety Report 13486559 (Version 2)
Quarter: 2017Q2

REPORT INFORMATION
  Report Type: Spontaneous
  Country: FR (occurrence: FR)
  Receive Date: 20170426
  Receipt Date: 20170525
  Transmission Date: 20170830
  Serious: Yes (Hospitalization, Other)
  Sender: FDA-Public Use
  Company Number: FR-MYLANLABS-2017M1025100

PATIENT

DRUGS (2)
  1. FONDAPARINUX [Suspect]
     Active Substance: FONDAPARINUX
     Indication: ATRIAL FIBRILLATION
     Dosage: UNK
     Route: 058
     Dates: start: 201703, end: 20170403
  2. AMIODARONE [Concomitant]
     Active Substance: AMIODARONE
     Indication: PRODUCT USED FOR UNKNOWN INDICATION
     Dosage: UNK
     Dates: start: 201703

REACTIONS (6)
  - Shock haemorrhagic [Recovering/Resolving]
  - Intra-abdominal haematoma [Not Recovered/Not Resolved]
  - Acute kidney injury [Recovered/Resolved]
  - Off label use [Unknown]
  - Cardiac arrest [Recovered/Resolved]
  - Respiratory distress [Recovered/Resolved]

NARRATIVE: CASE EVENT DATE: 20170403
